FAERS Safety Report 14760476 (Version 2)
Quarter: 2018Q2

REPORT INFORMATION
  Report Type: Spontaneous
  Country: DE (occurrence: DE)
  Receive Date: 20180414
  Receipt Date: 20180430
  Transmission Date: 20180711
  Serious: Yes (Death, Other)
  Sender: FDA-Public Use
  Company Number: DE-009507513-1804DEU005053

PATIENT
  Age: 79 Year
  Sex: Female
  Weight: 47 kg

DRUGS (1)
  1. KEYTRUDA [Suspect]
     Active Substance: PEMBROLIZUMAB
     Indication: TRANSITIONAL CELL CARCINOMA METASTATIC
     Dosage: 200 MG, ONCE
     Dates: start: 20180301, end: 20180301

REACTIONS (2)
  - Malignant neoplasm progression [Fatal]
  - Generalised erythema [Recovering/Resolving]

NARRATIVE: CASE EVENT DATE: 201803
